FAERS Safety Report 18342870 (Version 1)
Quarter: 2020Q4

REPORT INFORMATION
  Report Type: Spontaneous
  Country: US (occurrence: US)
  Receive Date: 20201002
  Receipt Date: 20201002
  Transmission Date: 20210113
  Serious: No
  Sender: FDA-Public Use
  Company Number: None

PATIENT
  Age: 65 Year
  Sex: Female

DRUGS (1)
  1. XELJANZ XR [Suspect]
     Active Substance: TOFACITINIB CITRATE
     Indication: PSORIATIC ARTHROPATHY
     Dosage: OTHER DOSE:TAKE 1 TABLET ; AS DIRECTED?
     Route: 048
     Dates: start: 202008

REACTIONS (5)
  - Diarrhoea [None]
  - Vomiting [None]
  - Urinary tract infection [None]
  - Headache [None]
  - Abdominal pain upper [None]
